FAERS Safety Report 7515393-6 (Version None)
Quarter: 2011Q2

REPORT INFORMATION
  Report Type: 
  Country: None (occurrence: None)
  Receive Date: 20110425
  Receipt Date: 20100211
  Transmission Date: 20111010
  Serious: Yes (Other)
  Sender: FDA-Public Use
  Company Number: MC201000050

PATIENT

DRUGS (2)
  1. PLAVIX [Suspect]
  2. ANGIOMAX [Suspect]
     Indication: PERCUTANEOUS CORONARY INTERVENTION

REACTIONS (2)
  - THROMBOSIS IN DEVICE [None]
  - COAGULATION TIME ABNORMAL [None]
